FAERS Safety Report 15626808 (Version 1)
Quarter: 2018Q4

REPORT INFORMATION
  Report Type: Spontaneous
  Country: US (occurrence: US)
  Receive Date: 20181116
  Receipt Date: 20181116
  Transmission Date: 20190205
  Serious: Yes (Life-Threatening, Hospitalization)
  Sender: FDA-Public Use
  Company Number: US-MYLANLABS-2018M1086412

PATIENT
  Age: 63 Year
  Sex: Male

DRUGS (2)
  1. BUPIVACAINE. [Suspect]
     Active Substance: BUPIVACAINE
     Indication: PRODUCT USED FOR UNKNOWN INDICATION
     Dosage: INTRATHECAL INFUSION
     Route: 037
  2. TRANEXAMIC ACID. [Suspect]
     Active Substance: TRANEXAMIC ACID
     Indication: PRODUCT USED FOR UNKNOWN INDICATION
     Dosage: INTRATHECAL INFUSION
     Route: 037

REACTIONS (7)
  - Heart rate increased [Recovered/Resolved]
  - Respiratory rate increased [Recovered/Resolved]
  - Product administered at inappropriate site [Recovered/Resolved]
  - Myoclonus [Recovered/Resolved]
  - Hypoxia [Recovered/Resolved]
  - Wrong product administered [Recovered/Resolved]
  - Hypertension [Recovered/Resolved]
